FAERS Safety Report 10026841 (Version 1)
Quarter: 2014Q1

REPORT INFORMATION
  Report Type: Report from Study
  Country: US (occurrence: US)
  Receive Date: 20140321
  Receipt Date: 20140321
  Transmission Date: 20141002
  Serious: Yes (Other)
  Sender: FDA-Public Use
  Company Number: US-ASTRAZENECA-2014SE18355

PATIENT
  Age: 67 Year
  Sex: Male
  Weight: 98.9 kg

DRUGS (7)
  1. NEXIUM [Suspect]
     Indication: GASTROOESOPHAGEAL REFLUX DISEASE
     Route: 048
     Dates: start: 2011
  2. LISINOPRIL [Suspect]
     Indication: BLOOD PRESSURE ABNORMAL
     Route: 048
     Dates: start: 201402
  3. BRILINTA [Suspect]
     Indication: ACUTE CORONARY SYNDROME
     Route: 048
     Dates: start: 20140307
  4. METOPROLOL TARTRATE [Concomitant]
     Indication: HEART RATE ABNORMAL
     Route: 048
  5. SIMVASTATIN [Concomitant]
     Indication: BLOOD CHOLESTEROL
     Route: 048
  6. ARMOURTHYRO [Concomitant]
     Indication: THYROID DISORDER
     Route: 048
  7. ASPIRIN [Concomitant]
     Route: 048

REACTIONS (6)
  - Cold sweat [Unknown]
  - Dyspnoea [Unknown]
  - Pharyngeal oedema [Unknown]
  - Hypersensitivity [Recovered/Resolved]
  - Lip swelling [Unknown]
  - Dizziness [Unknown]
